FAERS Safety Report 4616770-3 (Version None)
Quarter: 2005Q1

REPORT INFORMATION
  Report Type: 
  Country: None (occurrence: None)
  Receive Date: 20050321
  Receipt Date: 20050311
  Transmission Date: 20050727
  Serious: Yes (Death, Life-Threatening)
  Sender: FDA-Public Use
  Company Number: 2005AP01660

PATIENT
  Age: 66 Year
  Sex: Female

DRUGS (9)
  1. ESOMEPRAZOLE MAGNESIUM TRIHYDRATE [Suspect]
     Dosage: 40 MG DAILY PO
     Route: 048
  2. LEFLUNOMIDE [Suspect]
     Dosage: 20 MG DAILY PO
     Route: 048
  3. HYDROXYCHLOROQUINE SULPHATE [Suspect]
     Dosage: 200 MG DAILY PO
     Route: 048
  4. METHOTREXATE [Suspect]
     Dosage: 10 MG WEEK
  5. PREDNISOLONE [Suspect]
     Dosage: 7 MG DAILY PO
     Route: 048
  6. MELOXICAM [Suspect]
     Dosage: 15 MG DAILY PO
     Route: 048
  7. CLOPIDOGREL [Concomitant]
  8. DOTHIEP [Concomitant]
  9. ATENOLOL [Concomitant]

REACTIONS (2)
  - PANCYTOPENIA [None]
  - RENAL IMPAIRMENT [None]
